FAERS Safety Report 9060008 (Version 6)
Quarter: 2013Q3

REPORT INFORMATION
  Report Type: Report from Study
  Country: SE (occurrence: SE)
  Receive Date: 20130212
  Receipt Date: 20130911
  Transmission Date: 20140515
  Serious: Yes (Life-Threatening, Hospitalization, Other)
  Sender: FDA-Public Use
  Company Number: SE-AMGEN-SWESP2013006602

PATIENT
  Age: 66 Year
  Sex: Female
  Weight: 60 kg

DRUGS (6)
  1. ETANERCEPT [Suspect]
     Indication: RHEUMATOID ARTHRITIS
     Dosage: 50 MG, WEEKLY
     Route: 058
     Dates: start: 20040628, end: 20130126
  2. ETANERCEPT [Suspect]
     Indication: PSORIATIC ARTHROPATHY
     Dosage: UNK
     Route: 065
  3. METHOTREXATE SODIUM [Concomitant]
     Indication: PSORIATIC ARTHROPATHY
     Dosage: 7.5 MG, WEEKLY
     Route: 048
     Dates: start: 20040628, end: 20130110
  4. SIMVASTATIN [Concomitant]
     Dosage: 20 MG, 1X/DAY
     Dates: start: 20120209
  5. CALCIUM FOLINATE [Concomitant]
     Dosage: 15 MG, 5X/WEEK
  6. HYDROCORTISONE [Concomitant]
     Dosage: UNK

REACTIONS (2)
  - Autoimmune haemolytic anaemia [Recovered/Resolved with Sequelae]
  - Chronic lymphocytic leukaemia [Recovering/Resolving]
